FAERS Safety Report 20364242 (Version 1)
Quarter: 2022Q1

REPORT INFORMATION
  Report Type: Spontaneous
  Country: US (occurrence: None)
  Receive Date: 20220121
  Receipt Date: 20220121
  Transmission Date: 20220423
  Serious: Yes (Hospitalization, Disabling)
  Sender: FDA-Public Use
  Company Number: None

PATIENT
  Age: 69 Year
  Sex: Male
  Weight: 93 kg

DRUGS (1)
  1. SOTROVIMAB [Suspect]
     Active Substance: SOTROVIMAB
     Indication: COVID-19
     Dosage: 500 MG ONCE IV
     Route: 042
     Dates: start: 20220112, end: 20220112

REACTIONS (2)
  - Transient ischaemic attack [None]
  - Cerebrovascular accident [None]

NARRATIVE: CASE EVENT DATE: 20220119
